FAERS Safety Report 17818623 (Version 11)
Quarter: 2023Q1

REPORT INFORMATION
  Report Type: Report from Study
  Country: US (occurrence: US)
  Receive Date: 20200522
  Receipt Date: 20230216
  Transmission Date: 20230417
  Serious: Yes (Life-Threatening, Hospitalization, Other)
  Sender: FDA-Public Use
  Company Number: US-BIOGEN-2020BI00875562

PATIENT
  Sex: Female

DRUGS (2)
  1. TYSABRI [Suspect]
     Active Substance: NATALIZUMAB
     Indication: Multiple sclerosis
     Route: 050
     Dates: start: 20120516, end: 201903
  2. TYSABRI [Suspect]
     Active Substance: NATALIZUMAB
     Route: 050
     Dates: start: 20120516, end: 202001

REACTIONS (14)
  - Colon cancer [Not Recovered/Not Resolved]
  - Malignant polyp [Not Recovered/Not Resolved]
  - Large intestinal obstruction [Unknown]
  - Anaphylactic reaction [Recovered/Resolved]
  - Anal incontinence [Unknown]
  - Inflammation [Unknown]
  - Migraine [Unknown]
  - Drug hypersensitivity [Unknown]
  - Multiple sclerosis [Unknown]
  - Urinary incontinence [Unknown]
  - Headache [Not Recovered/Not Resolved]
  - Abdominal discomfort [Not Recovered/Not Resolved]
  - Nausea [Not Recovered/Not Resolved]
  - Vomiting [Not Recovered/Not Resolved]

NARRATIVE: CASE EVENT DATE: 20120101
